FAERS Safety Report 17955145 (Version 1)
Quarter: 2020Q2

REPORT INFORMATION
  Report Type: Spontaneous
  Country: US (occurrence: US)
  Receive Date: 20200626
  Receipt Date: 20200626
  Transmission Date: 20200714
  Serious: Yes (Other)
  Sender: FDA-Public Use
  Company Number: None

PATIENT
  Age: 73 Year
  Sex: Female

DRUGS (21)
  1. ALLOPURINOL. [Concomitant]
     Active Substance: ALLOPURINOL
  2. FOLBEE [Concomitant]
     Active Substance: CYANOCOBALAMIN\FOLIC ACID\PYRIDOXINE HYDROCHLORIDE
  3. ONDANSETRON [Concomitant]
     Active Substance: ONDANSETRON
  4. VALACYCLOVIR [Concomitant]
     Active Substance: VALACYCLOVIR HYDROCHLORIDE
  5. ACYCLOVIR. [Concomitant]
     Active Substance: ACYCLOVIR
  6. LACTULOSE. [Concomitant]
     Active Substance: LACTULOSE
  7. SEVELAMER [Concomitant]
     Active Substance: SEVELAMER
  8. OMEPRAZOLE. [Concomitant]
     Active Substance: OMEPRAZOLE
  9. PREDNISONE. [Concomitant]
     Active Substance: PREDNISONE
  10. ZARXIO [Concomitant]
     Active Substance: FILGRASTIM-SNDZ
  11. MERCAPTOPURINE 50MG TAB [Suspect]
     Active Substance: MERCAPTOPURINE
     Indication: PLASMA CELL MYELOMA
     Dosage: ?          OTHER DOSE:3 TABS-2 TABS;?
     Route: 048
  12. DULOXETINE. [Concomitant]
     Active Substance: DULOXETINE
  13. METHOTREXATE 2.5MG TAB [Suspect]
     Active Substance: METHOTREXATE
     Indication: PLASMA CELL MYELOMA
     Dosage: 14 TABS QWK PO
     Route: 048
  14. FLUCONZAOLE [Concomitant]
  15. SMZ/TMP DS [Concomitant]
     Active Substance: SULFAMETHOXAZOLE\TRIMETHOPRIM
  16. TRAZODONE [Concomitant]
     Active Substance: TRAZODONE HYDROCHLORIDE
  17. GABAPENTIN. [Concomitant]
     Active Substance: GABAPENTIN
  18. LEVOFLOXACIN. [Concomitant]
     Active Substance: LEVOFLOXACIN
  19. LEVOTHYROXIN [Concomitant]
     Active Substance: LEVOTHYROXINE
  20. LORAZEPAM. [Concomitant]
     Active Substance: LORAZEPAM
  21. METOCLOPRAM [Concomitant]
     Active Substance: METOCLOPRAMIDE

REACTIONS (1)
  - Leukaemia [None]

NARRATIVE: CASE EVENT DATE: 20200625
